FAERS Safety Report 6177759-9 (Version None)
Quarter: 2009Q2

REPORT INFORMATION
  Report Type: 
  Country: None (occurrence: None)
  Receive Date: 20090501
  Receipt Date: 20090501
  Transmission Date: 20091009
  Serious: Yes (Life-Threatening)
  Sender: FDA-Public Use
  Company Number: None

PATIENT
  Age: 32 Year
  Sex: Male
  Weight: 72 kg

DRUGS (10)
  1. HYDROMORPHONE HCL [Suspect]
     Indication: PAIN
     Dosage: 0/0.8/15
     Dates: start: 20090307
  2. ACYCLOVIR [Concomitant]
  3. CEFEPIME [Concomitant]
  4. HALDOL [Concomitant]
  5. INSULIN [Concomitant]
  6. LORATADINE [Concomitant]
  7. LORAZEPAM [Concomitant]
  8. TOCOPHEROL CONCENTRATE CAP [Concomitant]
  9. TRAZODONE HCL [Concomitant]
  10. VORICONAZOLE [Concomitant]

REACTIONS (5)
  - BLOOD PH DECREASED [None]
  - LETHARGY [None]
  - OXYGEN SATURATION DECREASED [None]
  - PO2 INCREASED [None]
  - RESPIRATORY RATE DECREASED [None]
